FAERS Safety Report 9080570 (Version 1)
Quarter: 2013Q1

REPORT INFORMATION
  Report Type: Spontaneous
  Country: GR (occurrence: GR)
  Receive Date: 20130130
  Receipt Date: 20130130
  Transmission Date: 20140127
  Serious: Yes (Death, Hospitalization)
  Sender: FDA-Public Use
  Company Number: GR-UCBSA-076414

PATIENT
  Age: 90 Year
  Sex: Female

DRUGS (5)
  1. VIMPAT [Suspect]
     Indication: EPILEPSY
     Route: 048
     Dates: start: 201211
  2. VIMPAT [Suspect]
     Indication: EPILEPSY
     Route: 042
  3. KEPPRA [Suspect]
     Indication: EPILEPSY
     Dates: end: 201211
  4. DEPAKINE [Concomitant]
     Indication: EPILEPSY
     Route: 042
     Dates: start: 201211
  5. DEPAKINE [Concomitant]
     Indication: EPILEPSY
     Route: 048

REACTIONS (3)
  - Death [Fatal]
  - Bradycardia [Unknown]
  - Epilepsy [Recovered/Resolved]
